FAERS Safety Report 4285856-8 (Version None)
Quarter: 2004Q1

REPORT INFORMATION
  Report Type: 
  Country: None (occurrence: None)
  Receive Date: 20040205
  Receipt Date: 20040127
  Transmission Date: 20041129
  Serious: Yes (Hospitalization)
  Sender: FDA-Public Use
  Company Number: 200410320FR

PATIENT
  Age: 67 Year
  Sex: Male

DRUGS (4)
  1. ARAVA [Suspect]
     Indication: RHEUMATOID ARTHRITIS
     Route: 048
     Dates: start: 20000901
  2. CORTANCYL [Suspect]
     Route: 048
     Dates: start: 20000901
  3. MEDROL [Suspect]
     Route: 048
     Dates: start: 20000901
  4. MOPRAL [Concomitant]
     Route: 048
     Dates: start: 20000901

REACTIONS (13)
  - CANDIDIASIS [None]
  - ENTEROCOCCAL INFECTION [None]
  - LUNG DISORDER [None]
  - LUNG INFECTION [None]
  - NEUROPATHY PERIPHERAL [None]
  - PNEUMONIA [None]
  - PNEUMONIA LEGIONELLA [None]
  - PSEUDOMONAS INFECTION [None]
  - RENAL FAILURE [None]
  - SEPTIC SHOCK [None]
  - STAPHYLOCOCCAL INFECTION [None]
  - SUPERINFECTION LUNG [None]
  - URETHRITIS [None]
